FAERS Safety Report 24816443 (Version 1)
Quarter: 2025Q1

REPORT INFORMATION
  Report Type: Spontaneous
  Country: EU (occurrence: EU)
  Receive Date: 20250107
  Receipt Date: 20250107
  Transmission Date: 20250408
  Serious: Yes (Other)
  Sender: ETHYPHARM
  Company Number: None

PATIENT
  Weight: 2.586 kg

DRUGS (2)
  1. BUPRENORPHINE HYDROCHLORIDE [Suspect]
     Active Substance: BUPRENORPHINE HYDROCHLORIDE
     Indication: Drug dependence
     Route: 064
     Dates: start: 20231129, end: 20240815
  2. ALPRAZOLAM [Suspect]
     Active Substance: ALPRAZOLAM
     Indication: Anxiety
     Route: 064
     Dates: start: 20231129, end: 20240815

REACTIONS (3)
  - Foetal malnutrition [Not Recovered/Not Resolved]
  - Acoustic stimulation tests abnormal [Not Recovered/Not Resolved]
  - Foetal exposure during pregnancy [Unknown]

NARRATIVE: CASE EVENT DATE: 20240815
